FAERS Safety Report 17667805 (Version 1)
Quarter: 2020Q2

REPORT INFORMATION
  Report Type: Spontaneous
  Country: ES (occurrence: ES)
  Receive Date: 20200414
  Receipt Date: 20200414
  Transmission Date: 20200713
  Serious: Yes (Other)
  Sender: FDA-Public Use
  Company Number: ES-BAUSCH-BL-2020-010715

PATIENT
  Age: 7 Year
  Sex: Male

DRUGS (4)
  1. GENTAMICINA [Suspect]
     Active Substance: GENTAMICIN
     Indication: VOLVULUS
     Dosage: 120MG/24H
     Route: 042
     Dates: start: 20190908, end: 20190920
  2. METRONIDAZOL [Suspect]
     Active Substance: METRONIDAZOLE
     Indication: VOLVULUS
     Dosage: 230MG/8H
     Route: 042
     Dates: start: 20190908, end: 20190920
  3. FUROSEMIDA [Suspect]
     Active Substance: FUROSEMIDE
     Indication: PRODUCT USED FOR UNKNOWN INDICATION
     Dosage: 3MG/8H
     Route: 042
     Dates: start: 20190916, end: 20190921
  4. AMOXICILINA/CLAVULANICO [Suspect]
     Active Substance: AMOXICILLIN\CLAVULANIC ACID
     Indication: VOLVULUS
     Dosage: 750MG/8H
     Route: 042
     Dates: start: 20190908, end: 20190920

REACTIONS (1)
  - Pancreatitis [Recovered/Resolved]

NARRATIVE: CASE EVENT DATE: 20190918
